FAERS Safety Report 16371277 (Version 2)
Quarter: 2019Q2

REPORT INFORMATION
  Report Type: Report from Study
  Country: CA (occurrence: CA)
  Receive Date: 20190530
  Receipt Date: 20190625
  Transmission Date: 20190711
  Serious: No
  Sender: FDA-Public Use
  Company Number: CA-SA-2019SA037667

PATIENT
  Age: 76 Year
  Sex: Male

DRUGS (1)
  1. CABAZITAXEL [Suspect]
     Active Substance: CABAZITAXEL
     Indication: PROSTATE CANCER
     Dosage: 37 MG, QCY
     Route: 042
     Dates: start: 20190123

REACTIONS (13)
  - Dyspnoea [Recovering/Resolving]
  - Prostatic specific antigen decreased [Not Recovered/Not Resolved]
  - Asthenia [Recovering/Resolving]
  - Asthenia [Recovering/Resolving]
  - Dyspnoea [Recovering/Resolving]
  - Asthenia [Recovering/Resolving]
  - Fatigue [Recovering/Resolving]
  - Prostatic specific antigen decreased [Not Recovered/Not Resolved]
  - Dyspnoea [Recovering/Resolving]
  - Fatigue [Recovering/Resolving]
  - Prostatic specific antigen decreased [Not Recovered/Not Resolved]
  - Fatigue [Recovering/Resolving]
  - Therapy responder [Recovering/Resolving]

NARRATIVE: CASE EVENT DATE: 20190123
